FAERS Safety Report 5869599-2 (Version None)
Quarter: 2008Q3

REPORT INFORMATION
  Report Type: 
  Country: None (occurrence: None)
  Receive Date: 20080904
  Receipt Date: 20071008
  Transmission Date: 20090109
  Serious: No
  Sender: FDA-Public Use
  Company Number: US-KINGPHARMUSA00001-K200701304

PATIENT

DRUGS (4)
  1. CYTOMEL [Suspect]
     Indication: THYROIDECTOMY
     Dosage: 2.5 MCG, QD
     Route: 048
     Dates: start: 20070917, end: 20070901
  2. CYTOMEL [Suspect]
     Dosage: 1.25 MCG, QD
     Route: 048
     Dates: start: 20070901
  3. UNITHROID [Concomitant]
     Dosage: 100 MCG, QD
  4. KLONOPIN [Concomitant]
     Dosage: .5 MG, QHS

REACTIONS (1)
  - FEELING JITTERY [None]
